FAERS Safety Report 5367489-5 (Version None)
Quarter: 2007Q2

REPORT INFORMATION
  Report Type: 
  Country: None (occurrence: None)
  Receive Date: 20070622
  Receipt Date: 20061031
  Transmission Date: 20071010
  Serious: No
  Sender: FDA-Public Use
  Company Number: US-ASTRAZENECA-2006UW20903

PATIENT
  Age: 67 Year
  Sex: Female
  Weight: 79.4 kg

DRUGS (10)
  1. PULMICORT [Suspect]
     Indication: ASTHMA
     Route: 055
     Dates: start: 20060301, end: 20060801
  2. PULMICORT [Suspect]
     Indication: MULTIPLE ALLERGIES
     Route: 055
     Dates: start: 20060301, end: 20060801
  3. PULMICORT [Suspect]
     Route: 055
     Dates: start: 20060801
  4. PULMICORT [Suspect]
     Route: 055
     Dates: start: 20060801
  5. ATROVENT [Concomitant]
  6. NASONEX [Concomitant]
  7. FORADIL [Concomitant]
  8. ALLEGRA [Concomitant]
  9. ZOCOR [Concomitant]
  10. DIOVAN [Concomitant]

REACTIONS (2)
  - DRUG INEFFECTIVE [None]
  - PRODUCTIVE COUGH [None]
